FAERS Safety Report 5444793-3 (Version None)
Quarter: 2007Q3

REPORT INFORMATION
  Report Type: 
  Country: None (occurrence: None)
  Receive Date: 20070906
  Receipt Date: 20070316
  Transmission Date: 20080115
  Serious: No
  Sender: FDA-Public Use
  Company Number: A0643544A

PATIENT
  Age: 53 Year
  Sex: Male

DRUGS (2)
  1. REQUIP [Suspect]
     Indication: PARKINSON'S DISEASE
     Dosage: 1MG THREE TIMES PER DAY
     Route: 065
     Dates: start: 20070218
  2. SYNTHROID [Concomitant]

REACTIONS (8)
  - CONSTIPATION [None]
  - EXPIRED DRUG ADMINISTERED [None]
  - FATIGUE [None]
  - HAEMORRHOIDS [None]
  - NAUSEA [None]
  - OEDEMA [None]
  - SOMNOLENCE [None]
  - STOMACH DISCOMFORT [None]
